FAERS Safety Report 6372345-X (Version None)
Quarter: 2009Q3

REPORT INFORMATION
  Report Type: 
  Country: None (occurrence: None)
  Receive Date: 20090924
  Receipt Date: 20081008
  Transmission Date: 20100115
  Serious: No
  Sender: FDA-Public Use
  Company Number: US-ASTRAZENECA-2008UW21918

PATIENT
  Age: 80 Year
  Sex: Female
  Weight: 65.8 kg

DRUGS (8)
  1. SEROQUEL [Suspect]
     Route: 048
  2. LUNESTA [Suspect]
     Indication: INSOMNIA
     Dosage: 3 MG
     Route: 048
     Dates: start: 20080901
  3. HYZAAR [Concomitant]
  4. DILTIAZEM [Concomitant]
  5. TRAZODONE [Concomitant]
  6. KLONOPIN [Concomitant]
  7. AMBIEN [Concomitant]
  8. RESTORIL [Concomitant]

REACTIONS (3)
  - INSOMNIA [None]
  - MALAISE [None]
  - NIGHTMARE [None]
